FAERS Safety Report 8891572 (Version 2)
Quarter: 2012Q4

REPORT INFORMATION
  Report Type: 
  Country: RU (occurrence: RU)
  Receive Date: 20121107
  Receipt Date: 20121114
  Transmission Date: 20130627
  Serious: Yes (Death)
  Sender: FDA-Public Use
  Company Number: RU-PFIZER INC-2012276699

PATIENT
  Age: 60 Year
  Sex: Female

DRUGS (2)
  1. LYRICA [Suspect]
     Indication: DIABETIC POLYNEUROPATHY
     Dosage: 75 mg, 2x/day
     Route: 048
     Dates: start: 201210, end: 201210
  2. LYRICA [Suspect]
     Dosage: 150 mg, 2x/day
     Route: 048
     Dates: start: 201210

REACTIONS (2)
  - Embolism [Fatal]
  - Myocardial ischaemia [Fatal]
